FAERS Safety Report 5836322-7 (Version None)
Quarter: 2008Q3

REPORT INFORMATION
  Report Type: 
  Country: None (occurrence: None)
  Receive Date: 20080807
  Receipt Date: 20080627
  Transmission Date: 20090109
  Serious: Yes (Other)
  Sender: FDA-Public Use
  Company Number: FR-BAXTER-2008BH007073

PATIENT
  Sex: Female
  Weight: 2 kg

DRUGS (4)
  1. GAMMAGARD S/D [Suspect]
     Indication: DRUG EXPOSURE DURING PREGNANCY
     Route: 064
     Dates: start: 20040101
  2. ZYRTEC [Concomitant]
     Route: 064
  3. POLARAMINE [Concomitant]
     Indication: RHINITIS ALLERGIC
     Route: 064
  4. RULID [Concomitant]
     Route: 064

REACTIONS (2)
  - DRUG EXPOSURE DURING PREGNANCY [None]
  - MATERNAL CONDITION AFFECTING FOETUS [None]
